FAERS Safety Report 8807804 (Version 2)
Quarter: 2014Q1

REPORT INFORMATION
  Report Type: Report from Study
  Country: US (occurrence: US)
  Receive Date: 20120925
  Receipt Date: 20140123
  Transmission Date: 20141002
  Serious: Yes (Hospitalization, Other)
  Sender: FDA-Public Use
  Company Number: US-ROCHE-1129126

PATIENT
  Age: 55 Year
  Sex: Male
  Weight: 131 kg

DRUGS (2)
  1. PEG-INTERFERON ALFA 2A [Suspect]
     Indication: CHRONIC HEPATITIS C
     Dosage: LAST DOSE OF PRIOR SAE: 27/AUG/2012
     Route: 065
     Dates: start: 20120827, end: 20120828
  2. RIBAVIRIN [Suspect]
     Indication: CHRONIC HEPATITIS C
     Dosage: LAST DOSE OF PRIOR SAE: 27/AUG/2012
     Route: 065
     Dates: start: 20120827, end: 20120828

REACTIONS (3)
  - Dyspnoea [Recovered/Resolved]
  - Pain in extremity [Recovered/Resolved]
  - Interstitial lung disease [Recovered/Resolved]
